FAERS Safety Report 4590988-0 (Version None)
Quarter: 2005Q1

REPORT INFORMATION
  Report Type: 
  Country: None (occurrence: None)
  Receive Date: 20050222
  Receipt Date: 20050222
  Transmission Date: 20050727
  Serious: Yes (Hospitalization)
  Sender: FDA-Public Use
  Company Number: None

PATIENT
  Age: 44 Year
  Sex: Male

DRUGS (2)
  1. VALPROIC ACID [Suspect]
     Indication: PSYCHOTIC DISORDER
     Dosage: 1.5 GRAMS BID ORAL
     Route: 048
     Dates: start: 20041008, end: 20041008
  2. CLOZAPINE [Suspect]
     Dosage: 300 MG BID ORAL
     Route: 048
     Dates: start: 20041008, end: 20041008

REACTIONS (1)
  - ALANINE AMINOTRANSFERASE INCREASED [None]
